FAERS Safety Report 15329324 (Version 1)
Quarter: 2018Q3

REPORT INFORMATION
  Report Type: Spontaneous
  Country: US (occurrence: US)
  Receive Date: 20180829
  Receipt Date: 20180829
  Transmission Date: 20181010
  Serious: No
  Sender: FDA-Public Use
  Company Number: US-GLAXOSMITHKLINE-US2018153241

PATIENT
  Sex: Female

DRUGS (1)
  1. ABREVA [Suspect]
     Active Substance: DOCOSANOL
     Indication: SUNBURN
     Dosage: SMALL AMOUNT

REACTIONS (4)
  - Application site erythema [Unknown]
  - Application site reaction [Unknown]
  - Off label use [Unknown]
  - Drug effective for unapproved indication [Unknown]
